FAERS Safety Report 19053120 (Version 2)
Quarter: 2021Q1

REPORT INFORMATION
  Report Type: Spontaneous
  Country: US (occurrence: US)
  Receive Date: 20210324
  Receipt Date: 20210326
  Transmission Date: 20210420
  Serious: Yes (Other)
  Sender: FDA-Public Use
  Company Number: US-PFIZER INC-2020110998

PATIENT
  Age: 63 Year
  Sex: Male
  Weight: 72.57 kg

DRUGS (2)
  1. RAPAMUNE [Suspect]
     Active Substance: SIROLIMUS
     Indication: LIVER TRANSPLANT REJECTION
     Dosage: 1 MG, DAILY (ONE TABLET DAILY)
     Route: 048
     Dates: start: 2019
  2. RAPAMUNE [Suspect]
     Active Substance: SIROLIMUS
     Dosage: 1 MG (DAILY)
     Dates: start: 20200314

REACTIONS (2)
  - Neoplasm [Unknown]
  - Off label use [Unknown]
